FAERS Safety Report 9310109 (Version 2)
Quarter: 2013Q4

REPORT INFORMATION
  Report Type: Spontaneous
  Country: US (occurrence: US)
  Receive Date: 20130527
  Receipt Date: 20131015
  Transmission Date: 20140711
  Serious: No
  Sender: FDA-Public Use
  Company Number: US-BIOGENIDEC-2013BI046790

PATIENT
  Age: 49 Year
  Sex: Female

DRUGS (1)
  1. TYSABRI [Suspect]
     Indication: MULTIPLE SCLEROSIS
     Route: 042
     Dates: start: 20121004

REACTIONS (9)
  - Ligament sprain [Not Recovered/Not Resolved]
  - Fungal infection [Unknown]
  - Burning sensation [Not Recovered/Not Resolved]
  - Mental impairment [Not Recovered/Not Resolved]
  - Balance disorder [Unknown]
  - Thirst [Not Recovered/Not Resolved]
  - Dry mouth [Unknown]
  - Headache [Unknown]
  - Nausea [Not Recovered/Not Resolved]
